FAERS Safety Report 16181860 (Version 2)
Quarter: 2019Q3

REPORT INFORMATION
  Report Type: Report from Study
  Country: ES (occurrence: ES)
  Receive Date: 20190410
  Receipt Date: 20190814
  Transmission Date: 20191004
  Serious: Yes (Hospitalization)
  Sender: FDA-Public Use
  Company Number: ES-EISAI MEDICAL RESEARCH-EC-2019-054638

PATIENT
  Age: 70 Year
  Sex: Male
  Weight: 83.8 kg

DRUGS (22)
  1. LENVATINIB [Suspect]
     Active Substance: LENVATINIB
     Route: 048
     Dates: start: 20181005, end: 20181027
  2. EVEROLIMUS. [Suspect]
     Active Substance: EVEROLIMUS
     Route: 048
     Dates: start: 20180704, end: 20180726
  3. EZETIMIBE. [Concomitant]
     Active Substance: EZETIMIBE
  4. LENVATINIB [Suspect]
     Active Substance: LENVATINIB
     Indication: RENAL CELL CARCINOMA
     Route: 048
     Dates: start: 20180615, end: 20180626
  5. EVEROLIMUS. [Suspect]
     Active Substance: EVEROLIMUS
     Route: 048
     Dates: start: 20181114
  6. ADIRO [Concomitant]
     Active Substance: ASPIRIN
  7. PANTOPRAZOLE [Concomitant]
     Active Substance: PANTOPRAZOLE
  8. EVEROLIMUS. [Suspect]
     Active Substance: EVEROLIMUS
     Route: 048
     Dates: start: 20180912, end: 20180926
  9. CARDURAN [Concomitant]
     Active Substance: DOXAZOSIN MESYLATE
  10. LENVATINIB [Suspect]
     Active Substance: LENVATINIB
     Route: 048
     Dates: start: 20181114
  11. ALOPURINOL [Concomitant]
     Active Substance: ALLOPURINOL
  12. LENVATINIB [Suspect]
     Active Substance: LENVATINIB
     Route: 048
     Dates: start: 20180704, end: 20180726
  13. LENVATINIB [Suspect]
     Active Substance: LENVATINIB
     Route: 048
     Dates: start: 20180803, end: 20180906
  14. LENVATINIB [Suspect]
     Active Substance: LENVATINIB
     Route: 048
     Dates: start: 20180912, end: 20180926
  15. EVEROLIMUS. [Suspect]
     Active Substance: EVEROLIMUS
     Indication: RENAL CELL CARCINOMA
     Route: 048
     Dates: start: 20180615, end: 20180626
  16. EVEROLIMUS. [Suspect]
     Active Substance: EVEROLIMUS
     Route: 048
     Dates: start: 20181005, end: 20181027
  17. BISOPROLOL [Concomitant]
     Active Substance: BISOPROLOL
  18. ACOVIL [Concomitant]
     Active Substance: RAMIPRIL
  19. LINAGLIPTINA [Concomitant]
     Active Substance: LINAGLIPTIN
  20. EVEROLIMUS. [Suspect]
     Active Substance: EVEROLIMUS
     Route: 048
     Dates: start: 20180803, end: 20180829
  21. SUTRIL [Concomitant]
     Active Substance: TORSEMIDE
  22. SIMVASTATINA [Concomitant]
     Active Substance: SIMVASTATIN

REACTIONS (1)
  - Hypocalcaemia [Recovered/Resolved]

NARRATIVE: CASE EVENT DATE: 20181030
